FAERS Safety Report 5742542-2 (Version None)
Quarter: 2008Q2

REPORT INFORMATION
  Report Type: 
  Country: None (occurrence: None)
  Receive Date: 20080519
  Receipt Date: 20080514
  Transmission Date: 20081010
  Serious: Yes (Other)
  Sender: FDA-Public Use
  Company Number: AU-GILEAD-2008-0016432

PATIENT
  Sex: Female
  Weight: 40 kg

DRUGS (5)
  1. TRUVADA [Suspect]
     Indication: HIV INFECTION
     Route: 048
     Dates: start: 20080509
  2. KALETRA [Suspect]
     Indication: HIV INFECTION
     Route: 048
     Dates: start: 20080509, end: 20080509
  3. KALETRA [Suspect]
     Route: 048
     Dates: start: 20080513, end: 20080513
  4. IMODIUM [Concomitant]
  5. GARLIC [Concomitant]

REACTIONS (5)
  - APHASIA [None]
  - ASTHENIA [None]
  - PARALYSIS [None]
  - RASH [None]
  - TONGUE PARALYSIS [None]
